FAERS Safety Report 21829541 (Version 3)
Quarter: 2023Q2

REPORT INFORMATION
  Report Type: Spontaneous
  Country: CA (occurrence: CA)
  Receive Date: 20230106
  Receipt Date: 20230628
  Transmission Date: 20230721
  Serious: Yes (Hospitalization, Other)
  Sender: FDA-Public Use
  Company Number: CA-Accord-294292

PATIENT
  Age: 69 Year
  Sex: Male

DRUGS (24)
  1. FLUOROURACIL [Suspect]
     Active Substance: FLUOROURACIL
     Indication: Acinar cell carcinoma of pancreas
     Dosage: 4200 MG/M^2 EVERY 2-WK,1 EVERY 2 WEEKS
  2. IRINOTECAN [Suspect]
     Active Substance: IRINOTECAN
     Indication: Panniculitis
     Dosage: 120 MG/M^2 EVERY 2-WK, 1 EVERY 2 WEEKS
  3. OXALIPLATIN [Suspect]
     Active Substance: OXALIPLATIN
     Indication: Panniculitis
     Dosage: 65 MG/M^2 EVERY 2-WK, 1 EVERY 2 WEEKS
  4. LEUCOVORIN [Suspect]
     Active Substance: LEUCOVORIN
     Indication: Panniculitis
     Dosage: 400 MG/M^2 EVERY 2-WK,1 EVERY 2 WEEKS
  5. PREDNISOLONE [Concomitant]
     Active Substance: PREDNISOLONE
     Indication: Arthritis
     Dosage: TAPERING DOSE
  6. DEXAMETHASONE [Concomitant]
     Active Substance: DEXAMETHASONE
  7. NAPROXEN [Concomitant]
     Active Substance: NAPROXEN
     Indication: Gout
  8. OLAPARIB [Suspect]
     Active Substance: OLAPARIB
     Indication: Acinar cell carcinoma of pancreas
     Dosage: 2 EVERY 1 DAYS
  9. PREDNISOLONE [Concomitant]
     Active Substance: PREDNISOLONE
     Indication: Seronegative arthritis
     Dosage: EVERY 1 DAYS
  10. PREDNISOLONE [Concomitant]
     Active Substance: PREDNISOLONE
     Indication: Gout
     Dates: start: 2021
  11. IRINOTECAN [Suspect]
     Active Substance: IRINOTECAN
     Indication: Acinar cell carcinoma of pancreas
     Dosage: 120 MG/M^2 EVERY 2-WK
  12. IRINOTECAN [Suspect]
     Active Substance: IRINOTECAN
     Indication: Metastases to liver
     Dosage: 120 MG/M^2 EVERY 2-WK
  13. LEUCOVORIN [Suspect]
     Active Substance: LEUCOVORIN
     Indication: Metastases to liver
     Dosage: 400 MG/M^2 EVERY 2-WK
  14. LEUCOVORIN [Suspect]
     Active Substance: LEUCOVORIN
     Indication: Acinar cell carcinoma of pancreas
     Dosage: 400 MG/M^2 EVERY 2-WK
  15. FLUOROURACIL [Suspect]
     Active Substance: FLUOROURACIL
     Indication: Metastases to liver
     Dosage: 4200 MG/M^2 EVERY 2-WK
  16. FLUOROURACIL [Suspect]
     Active Substance: FLUOROURACIL
     Indication: Panniculitis
     Dosage: 4200 MG/M^2 EVERY 2-WK
  17. NAPROXEN [Concomitant]
     Active Substance: NAPROXEN
     Indication: Seronegative arthritis
  18. NAPROXEN [Concomitant]
     Active Substance: NAPROXEN
     Indication: Arthritis
  19. OXALIPLATIN [Suspect]
     Active Substance: OXALIPLATIN
     Indication: Acinar cell carcinoma of pancreas
     Dosage: 65 MG/M^2 EVERY 2-WK
  20. OXALIPLATIN [Suspect]
     Active Substance: OXALIPLATIN
     Indication: Metastases to liver
     Dosage: 65 MG/M^2 EVERY 2-WK
  21. FLUOROURACIL [Suspect]
     Active Substance: FLUOROURACIL
     Indication: Acinar cell carcinoma of pancreas
     Route: 042
  22. IRINOTECAN [Suspect]
     Active Substance: IRINOTECAN
     Indication: Panniculitis
     Route: 042
  23. OXALIPLATIN [Suspect]
     Active Substance: OXALIPLATIN
     Indication: Panniculitis
     Dosage: 65 MG/M^2 EVERY 2-WK
     Route: 042
  24. LEUCOVORIN [Suspect]
     Active Substance: LEUCOVORIN
     Indication: Panniculitis

REACTIONS (3)
  - Off label use [Unknown]
  - Peripheral sensory neuropathy [Recovered/Resolved]
  - Neurotoxicity [Unknown]
